FAERS Safety Report 6405956-3 (Version None)
Quarter: 2009Q4

REPORT INFORMATION
  Report Type: 
  Country: None (occurrence: None)
  Receive Date: 20091019
  Receipt Date: 20091008
  Transmission Date: 20100525
  Serious: Yes (Other)
  Sender: FDA-Public Use
  Company Number: FR-ELI_LILLY_AND_COMPANY-FR200910001927

PATIENT
  Age: 50 Year
  Sex: Male

DRUGS (1)
  1. FORTEO [Suspect]
     Indication: OSTEOPOROSIS
     Dosage: 20 UG, UNKNOWN
     Route: 065
     Dates: start: 20080227

REACTIONS (4)
  - BACK PAIN [None]
  - FALL [None]
  - FEELING ABNORMAL [None]
  - LUMBAR VERTEBRAL FRACTURE [None]
